FAERS Safety Report 4968871-8 (Version None)
Quarter: 2006Q2

REPORT INFORMATION
  Report Type: 
  Country: None (occurrence: None)
  Receive Date: 20060405
  Receipt Date: 20060320
  Transmission Date: 20061013
  Serious: Yes (Death)
  Sender: FDA-Public Use
  Company Number: 6021477

PATIENT
  Sex: Male

DRUGS (1)
  1. AMNESTEEM [Suspect]
     Indication: ACNE
     Dosage: ORAL
     Route: 048
     Dates: start: 20060301

REACTIONS (2)
  - POLYTRAUMATISM [None]
  - ROAD TRAFFIC ACCIDENT [None]
